FAERS Safety Report 8029422-7 (Version None)
Quarter: 2012Q1

REPORT INFORMATION
  Report Type: 
  Country: None (occurrence: None)
  Receive Date: 20120106
  Receipt Date: 20111228
  Transmission Date: 20120608
  Serious: Yes (Other)
  Sender: FDA-Public Use
  Company Number: US-ASTRAZENECA-2011SE73490

PATIENT
  Age: 70 Year
  Sex: Female

DRUGS (1)
  1. NEXIUM [Suspect]
     Route: 048

REACTIONS (5)
  - LUNG NEOPLASM MALIGNANT [None]
  - THROAT CANCER [None]
  - ABASIA [None]
  - PAIN [None]
  - BONE NEOPLASM MALIGNANT [None]
